FAERS Safety Report 21247150 (Version 5)
Quarter: 2022Q4

REPORT INFORMATION
  Report Type: Spontaneous
  Country: FR (occurrence: FR)
  Receive Date: 20220824
  Receipt Date: 20221203
  Transmission Date: 20230113
  Serious: Yes (Other)
  Sender: FDA-Public Use
  Company Number: FR-JNJFOC-20220835110

PATIENT

DRUGS (4)
  1. ERDAFITINIB [Suspect]
     Active Substance: ERDAFITINIB
     Indication: Transitional cell carcinoma
     Route: 065
  2. ERDAFITINIB [Suspect]
     Active Substance: ERDAFITINIB
     Route: 065
  3. ERDAFITINIB [Suspect]
     Active Substance: ERDAFITINIB
     Route: 065
     Dates: start: 20220830
  4. ERDAFITINIB [Suspect]
     Active Substance: ERDAFITINIB
     Dosage: THE DOSE WAS INCREASED, TO 7MG/DAY (1 ERDAFITINIB 4MG + 1 ERDAFITINIB 3MG)
     Route: 065
     Dates: start: 20221118

REACTIONS (3)
  - Renal failure [Unknown]
  - Transitional cell carcinoma metastatic [Unknown]
  - Off label use [Unknown]

NARRATIVE: CASE EVENT DATE: 20220830
